APPROVED DRUG PRODUCT: TRAMADOL HYDROCHLORIDE
Active Ingredient: TRAMADOL HYDROCHLORIDE
Strength: 50MG
Dosage Form/Route: TABLET;ORAL
Application: A201973 | Product #001
Applicant: IPCA LABORATORIES LTD
Approved: Nov 16, 2012 | RLD: No | RS: No | Type: DISCN